FAERS Safety Report 19602675 (Version 16)
Quarter: 2024Q2

REPORT INFORMATION
  Report Type: Spontaneous
  Country: US (occurrence: US)
  Receive Date: 20210723
  Receipt Date: 20240618
  Transmission Date: 20240716
  Serious: Yes (Hospitalization, Other)
  Sender: FDA-Public Use
  Company Number: US-PFIZER INC-2021605420

PATIENT
  Age: 85 Year
  Sex: Female
  Weight: 49.9 kg

DRUGS (18)
  1. BOSULIF [Suspect]
     Active Substance: BOSUTINIB MONOHYDRATE
     Indication: Philadelphia positive chronic myeloid leukaemia
     Dosage: 400 MG, DAILY
     Route: 048
     Dates: start: 20210407
  2. BOSULIF [Suspect]
     Active Substance: BOSUTINIB MONOHYDRATE
     Dosage: 400 MG, 1X/DAY  (WITH BREAKFAST)
     Route: 048
     Dates: start: 20210416
  3. BOSULIF [Suspect]
     Active Substance: BOSUTINIB MONOHYDRATE
     Dosage: 300 MG, 1X/DAY
  4. BOSULIF [Suspect]
     Active Substance: BOSUTINIB MONOHYDRATE
     Dosage: 300 MG, DAILY
     Dates: end: 20211023
  5. BOSULIF [Suspect]
     Active Substance: BOSUTINIB MONOHYDRATE
     Dosage: 100 MG
     Route: 048
     Dates: start: 20211228
  6. BOSULIF [Suspect]
     Active Substance: BOSUTINIB MONOHYDRATE
     Dosage: 400 MG
     Dates: start: 20220726
  7. BOSULIF [Suspect]
     Active Substance: BOSUTINIB MONOHYDRATE
     Dosage: 300 MG, DAILY (3 TABLETS DAILY FOR 30 DAYS)
     Route: 048
  8. BOSULIF [Suspect]
     Active Substance: BOSUTINIB MONOHYDRATE
     Dosage: 2 TABLET DAILY FOR 30 DAYS NEW DOSE
     Route: 048
  9. BOSULIF [Suspect]
     Active Substance: BOSUTINIB MONOHYDRATE
     Dosage: 3 TABLET OF 100MG (300 MG TOTAL) DAILY FOR 30 DAYS NEW DOSE
     Route: 048
  10. SIMBRINZA [Suspect]
     Active Substance: BRIMONIDINE TARTRATE\BRINZOLAMIDE
     Indication: Glaucoma
     Dosage: UNK, 2X/DAY (0.2% BOTH EYES)
     Dates: start: 200510
  11. CRESTOR [Concomitant]
     Active Substance: ROSUVASTATIN CALCIUM
     Indication: Cerebrovascular accident
     Dosage: UNK
     Dates: start: 20210405, end: 20210517
  12. CRESTOR [Concomitant]
     Active Substance: ROSUVASTATIN CALCIUM
     Dosage: UNK
     Dates: start: 20221015, end: 202210
  13. PRAVASTATIN [Concomitant]
     Active Substance: PRAVASTATIN
     Indication: Blood cholesterol increased
     Dosage: 20 MG, 1X/DAY
     Route: 048
     Dates: start: 20210607
  14. SYNTHROID [Concomitant]
     Active Substance: LEVOTHYROXINE SODIUM
     Indication: Blood pressure abnormal
     Dosage: 0.25 MG, ONCE A DAY
     Route: 048
     Dates: start: 2013
  15. SYNTHROID [Concomitant]
     Active Substance: LEVOTHYROXINE SODIUM
     Indication: Hypothyroidism
     Dosage: 0.05 MG, 1X/DAY
  16. TRAMADOL [Concomitant]
     Active Substance: TRAMADOL\TRAMADOL HYDROCHLORIDE
     Indication: Spinal stenosis
     Dosage: 50 MG, 1X/DAY
  17. VITAMIN D3 [Concomitant]
     Active Substance: CHOLECALCIFEROL
     Dosage: 1000 IU (25MCG) 1X
  18. COBAMAMIDE [Concomitant]
     Active Substance: COBAMAMIDE
     Dosage: 1000 UG (1000MCG 1X)
     Route: 060

REACTIONS (9)
  - Glaucoma [Not Recovered/Not Resolved]
  - Atrial fibrillation [Unknown]
  - Weight decreased [Not Recovered/Not Resolved]
  - Eye haemorrhage [Unknown]
  - Spinal stenosis [Not Recovered/Not Resolved]
  - Diarrhoea [Recovered/Resolved]
  - Fatigue [Not Recovered/Not Resolved]
  - Influenza [Unknown]
  - Post procedural complication [Unknown]

NARRATIVE: CASE EVENT DATE: 20160101
